FAERS Safety Report 8647836 (Version 9)
Quarter: 2014Q4

REPORT INFORMATION
  Report Type: Spontaneous
  Country: US (occurrence: US)
  Receive Date: 20120703
  Receipt Date: 20141217
  Transmission Date: 20150529
  Serious: Yes (Disabling, Other)
  Sender: FDA-Public Use
  Company Number: US-PERRIGO-12US005538

PATIENT
  Age: 56 Year
  Sex: Female
  Weight: 68.27 kg

DRUGS (6)
  1. TRIAMCINOLONE ACETONIDE RX 0.1% 2F8 [Suspect]
     Active Substance: TRIAMCINOLONE ACETONIDE
     Indication: VULVOVAGINAL DISCOMFORT
     Dosage: ONE APPLICATION, DAILY
     Route: 067
     Dates: start: 20110506, end: 20110515
  2. EFFEXOR [Concomitant]
     Active Substance: VENLAFAXINE HYDROCHLORIDE
     Indication: MENOPAUSAL SYMPTOMS
     Dosage: UNK
     Route: 048
  3. HYDROCHLOROTHIAZIDE. [Concomitant]
     Active Substance: HYDROCHLOROTHIAZIDE
     Indication: FLUID RETENTION
     Dosage: UNK
     Route: 048
  4. HYDROCHLOROTHIAZIDE. [Concomitant]
     Active Substance: HYDROCHLOROTHIAZIDE
     Indication: HYPERTENSION
  5. TRIAMCINOLONE ACETONIDE RX 0.1% 2F8 [Suspect]
     Active Substance: TRIAMCINOLONE ACETONIDE
     Indication: VAGINAL LESION
  6. LYRICA [Concomitant]
     Active Substance: PREGABALIN
     Indication: NEURALGIA
     Dosage: UNK
     Route: 048

REACTIONS (32)
  - Vaginal inflammation [Recovered/Resolved]
  - Pain [Not Recovered/Not Resolved]
  - Gynaecological examination abnormal [Unknown]
  - Nerve injury [Not Recovered/Not Resolved]
  - Vaginal ulceration [Recovered/Resolved]
  - Incorrect route of drug administration [Recovered/Resolved]
  - Pain in extremity [Not Recovered/Not Resolved]
  - Vulvitis [Not Recovered/Not Resolved]
  - Vulvovaginal erythema [Recovered/Resolved]
  - Pelvic pain [Not Recovered/Not Resolved]
  - Vaginal oedema [Recovered/Resolved]
  - Back pain [Recovering/Resolving]
  - Excoriation [Recovered/Resolved]
  - Hypersensitivity [Not Recovered/Not Resolved]
  - Vulvovaginal pain [Not Recovered/Not Resolved]
  - Vulvovaginal burning sensation [Recovered/Resolved]
  - Dyspareunia [Not Recovered/Not Resolved]
  - Malaise [Not Recovered/Not Resolved]
  - Cystitis [Recovering/Resolving]
  - Muscle tightness [Not Recovered/Not Resolved]
  - Musculoskeletal pain [Recovering/Resolving]
  - Neuropathy peripheral [Not Recovered/Not Resolved]
  - Vulvovaginal discomfort [Unknown]
  - Hypotonia [Not Recovered/Not Resolved]
  - Muscle spasms [Not Recovered/Not Resolved]
  - Atrophic vulvovaginitis [Recovering/Resolving]
  - Muscle atrophy [Not Recovered/Not Resolved]
  - Vaginal infection [Unknown]
  - Neuralgia [Not Recovered/Not Resolved]
  - Perineal pain [Not Recovered/Not Resolved]
  - Myalgia [Unknown]
  - Levator syndrome [Unknown]

NARRATIVE: CASE EVENT DATE: 2011
